FAERS Safety Report 12838942 (Version 12)
Quarter: 2021Q4

REPORT INFORMATION
  Report Type: Spontaneous
  Country: US (occurrence: US)
  Receive Date: 20161012
  Receipt Date: 20211221
  Transmission Date: 20220303
  Serious: Yes (Other)
  Sender: FDA-Public Use
  Company Number: US-PFIZER INC-2016405701

PATIENT
  Age: 54 Year
  Sex: Female

DRUGS (30)
  1. LYRICA [Suspect]
     Active Substance: PREGABALIN
     Indication: Fibromyalgia
     Dosage: 150 MG, 2X/DAY
     Route: 048
  2. LYRICA [Suspect]
     Active Substance: PREGABALIN
     Indication: Myopathy
     Dosage: 100 MG, (1-2 X DAY)
     Route: 048
  3. LYRICA [Suspect]
     Active Substance: PREGABALIN
     Indication: Myelopathy
     Dosage: UNK, 2X/DAY
     Route: 048
  4. LYRICA [Suspect]
     Active Substance: PREGABALIN
     Dosage: 225 MG, 2X/DAY, (1-2 X DAY)
     Route: 048
  5. CYMBALTA [Concomitant]
     Active Substance: DULOXETINE HYDROCHLORIDE
     Indication: Fibromyalgia
     Dosage: 30 MG, 1X/DAY (AM-BEFORE MEAL)
  6. CYMBALTA [Concomitant]
     Active Substance: DULOXETINE HYDROCHLORIDE
     Dosage: 60 MG, 1X/DAY (AM-BEFORE MEAL)
  7. LEVOTHYROXINE [Concomitant]
     Active Substance: LEVOTHYROXINE
     Indication: Thyroid disorder
     Dosage: 150 UG, 1X/DAY (AM-BEFORE MEAL)
  8. CELEBREX [Concomitant]
     Active Substance: CELECOXIB
     Indication: Musculoskeletal discomfort
     Dosage: 200 MG, 1X/DAY (AM-BEFORE MEAL)
     Route: 048
  9. ESTRADIOL [Concomitant]
     Active Substance: ESTRADIOL
     Indication: Hormone replacement therapy
     Dosage: 2 MG, 1X/DAY (AM-BEFORE MEAL)
  10. OMEPRAZOLE [Concomitant]
     Active Substance: OMEPRAZOLE
     Indication: Abdominal discomfort
     Dosage: 20 MG, 1X/DAY (AM-BEFORE MEAL)
  11. ACYCLOVIR [Concomitant]
     Active Substance: ACYCLOVIR
     Indication: Herpes zoster
     Dosage: 800 MG, 1X/DAY (AM AFTER MEAL)
  12. SPIRONOLACTONE [Concomitant]
     Active Substance: SPIRONOLACTONE
     Indication: Blood pressure abnormal
     Dosage: 25 MG, 1X/DAY (AM AFTER MEAL)
  13. METOPROLOL SUCCINATE [Concomitant]
     Active Substance: METOPROLOL SUCCINATE
     Indication: Blood pressure abnormal
     Dosage: 25 MG, 1X/DAY (AM AFTER MEAL)
  14. LOSARTAN POTASSIUM [Concomitant]
     Active Substance: LOSARTAN POTASSIUM
     Indication: Blood pressure abnormal
     Dosage: 200 MG, 1X/DAY (AM AFTER MEAL)
  15. LOSARTAN POTASSIUM [Concomitant]
     Active Substance: LOSARTAN POTASSIUM
     Dosage: 100 MG, 1X/DAY (AM AFTER MEAL)
  16. TRAMADOL [Concomitant]
     Active Substance: TRAMADOL
     Indication: Analgesic therapy
     Dosage: 50 MG, AS NEEDED (50MG 1/DAY (3X DAY AS NEEDED, AM AFTER MEAL))
  17. TRAMADOL [Concomitant]
     Active Substance: TRAMADOL
     Indication: Sleep disorder
  18. CYCLOBENZAPRINE [Concomitant]
     Active Substance: CYCLOBENZAPRINE
     Indication: Analgesic therapy
     Dosage: 10 MG, AS NEEDED (3X DAY)
  19. CYCLOBENZAPRINE [Concomitant]
     Active Substance: CYCLOBENZAPRINE
     Indication: Sleep disorder
  20. ALBUTEROL SULFATE [Concomitant]
     Active Substance: ALBUTEROL SULFATE
     Indication: Asthma
     Dosage: 90 UG, AS NEEDED (2 PUFFS)
  21. BUDESONIDE [Concomitant]
     Active Substance: BUDESONIDE
     Indication: Hypersensitivity
     Dosage: AS NEEDED (55 MCG/SPRAY 1 X DAY)
  22. KIRKLAND SIGNATURE ALLERCLEAR [Concomitant]
     Active Substance: LORATADINE
     Indication: Hypersensitivity
     Dosage: 10 MG, 1X/DAY (AM-BEFORE MEAL)
  23. CLARITIN [Concomitant]
     Active Substance: LORATADINE
     Indication: Hypersensitivity
     Dosage: 10 MG, 1X/DAY (AM-BEFORE MEAL)
  24. MUCUS ER [Concomitant]
     Active Substance: GUAIFENESIN
     Indication: Nasal congestion
     Dosage: 600 MG, AS NEEDED (1/12 HOURS AS NEEDED, USE RARELY)
  25. VITAMIN D3 [Concomitant]
     Active Substance: CHOLECALCIFEROL
     Indication: Carpal tunnel syndrome
     Dosage: 5000 IU, 1X/DAY (AM AFTER MEAL)
  26. MINERALS\VITAMINS [Concomitant]
     Active Substance: MINERALS\VITAMINS
     Dosage: UNK, 1X/DAY (AM AFTER MEAL)
  27. VITAMIN B12 [Concomitant]
     Active Substance: CYANOCOBALAMIN
     Dosage: 2500 UG, 1X/DAY (QUICK DISSOLVE, AM AFTER MEAL)
  28. PYRIDOXINE [Concomitant]
     Active Substance: PYRIDOXINE
     Dosage: 100 MG, 1X/DAY (AM AFTER MEAL)
  29. GLUCOSAMINE HCL/MSN [Concomitant]
     Dosage: 1500 MG, 2X/DAY (AM AFTER MEAL)
  30. BENADRYL [Concomitant]
     Active Substance: DIPHENHYDRAMINE HYDROCHLORIDE
     Dosage: UNK (AT BEDTIME SHE TAKES 6 MORE)

REACTIONS (10)
  - Drug dependence [Unknown]
  - Spinal cord compression [Unknown]
  - Pain in extremity [Unknown]
  - Weight increased [Unknown]
  - Frustration tolerance decreased [Unknown]
  - Pain [Unknown]
  - Sensory loss [Unknown]
  - Nasal disorder [Unknown]
  - Speech disorder [Unknown]
  - Thermal burn [Unknown]

NARRATIVE: CASE EVENT DATE: 20211201
